FAERS Safety Report 7765652-7 (Version None)
Quarter: 2011Q3

REPORT INFORMATION
  Report Type: 
  Country: None (occurrence: None)
  Receive Date: 20110921
  Receipt Date: 20110915
  Transmission Date: 20111222
  Serious: Yes (Other)
  Sender: FDA-Public Use
  Company Number: US-PFIZER INC-2011220110

PATIENT
  Sex: Female
  Weight: 88 kg

DRUGS (6)
  1. OXYCODONE [Concomitant]
     Indication: BACK DISORDER
     Dosage: 30 MG, 4X/DAY
  2. SOMA [Concomitant]
     Indication: MUSCLE SPASMS
     Dosage: 350 MG, 2X/DAY
     Route: 048
  3. LYRICA [Suspect]
     Indication: NEURALGIA
     Dosage: 75 MG, 3X/DAY
     Route: 048
     Dates: start: 20110801, end: 20110914
  4. MORPHINE [Concomitant]
     Indication: BACK DISORDER
     Dosage: 15 MG, 3X/DAY
  5. PROZAC [Concomitant]
     Indication: DEPRESSION
     Dosage: 80 MG, DAILY
  6. HYDROXYZINE [Concomitant]
     Indication: ANXIETY
     Dosage: 20 MG, 3X/DAY

REACTIONS (13)
  - FALL [None]
  - DYSPNOEA [None]
  - INFLAMMATION [None]
  - HYPERSOMNIA [None]
  - SNORING [None]
  - ABDOMINAL PAIN UPPER [None]
  - MALAISE [None]
  - OEDEMA PERIPHERAL [None]
  - PAIN [None]
  - PYREXIA [None]
  - SPEECH DISORDER [None]
  - FATIGUE [None]
  - SOMNOLENCE [None]
